FAERS Safety Report 6141718-2 (Version None)
Quarter: 2009Q2

REPORT INFORMATION
  Report Type: 
  Country: None (occurrence: None)
  Receive Date: 20090402
  Receipt Date: 20090327
  Transmission Date: 20091009
  Serious: Yes (Other)
  Sender: FDA-Public Use
  Company Number: US-ELI_LILLY_AND_COMPANY-US200903007421

PATIENT
  Sex: Female

DRUGS (3)
  1. HUMALOG [Suspect]
  2. HUMULIN N [Suspect]
  3. HUMULIN L [Suspect]

REACTIONS (4)
  - RETINAL HAEMORRHAGE [None]
  - RETINAL INJURY [None]
  - RETINAL SCAR [None]
  - VISUAL IMPAIRMENT [None]
